FAERS Safety Report 19234194 (Version 1)
Quarter: 2021Q2

REPORT INFORMATION
  Report Type: Other
  Country: JP (occurrence: JP)
  Receive Date: 20210508
  Receipt Date: 20210508
  Transmission Date: 20210717
  Serious: Yes (Life-Threatening, Hospitalization, Other)
  Sender: FDA-Public Use
  Company Number: JP-LAURUS-001071

PATIENT
  Age: 17 Year
  Sex: Female

DRUGS (2)
  1. MYCOPHENOLATE MOFETIL. [Concomitant]
     Active Substance: MYCOPHENOLATE MOFETIL
     Indication: SYSTEMIC LUPUS ERYTHEMATOSUS
  2. HYDROXYCHLOROQUINE [Suspect]
     Active Substance: HYDROXYCHLOROQUINE
     Indication: SYSTEMIC LUPUS ERYTHEMATOSUS
     Dosage: HAD TAKEN 10 G OF HCQ IMPULSIVELY.

REACTIONS (6)
  - Toxicity to various agents [Unknown]
  - Intentional overdose [Unknown]
  - Renal tubular dysfunction [Recovered/Resolved]
  - Hypokalaemia [Recovered/Resolved]
  - Ventricular extrasystoles [Recovered/Resolved]
  - Circulatory collapse [Recovered/Resolved]
